FAERS Safety Report 19441020 (Version 7)
Quarter: 2022Q1

REPORT INFORMATION
  Report Type: Report from Study
  Country: GB (occurrence: GB)
  Receive Date: 20210621
  Receipt Date: 20220217
  Transmission Date: 20220423
  Serious: Yes (Death, Hospitalization)
  Sender: FDA-Public Use
  Company Number: GB-CELLTRION INC.-2021GB008288

PATIENT

DRUGS (23)
  1. TRASTUZUMAB [Suspect]
     Active Substance: TRASTUZUMAB
     Indication: Breast cancer metastatic
     Dosage: 609 MG EVERY 3 WEEKS, LOADING DOSE: 8 MG/KG
     Route: 042
     Dates: start: 20150930, end: 20150930
  2. TRASTUZUMAB [Suspect]
     Active Substance: TRASTUZUMAB
     Dosage: 441 MG EVERY 3 WEEKS, MAINTAINANCE DOSE: 6 MG/KG
     Route: 042
     Dates: start: 20151021
  3. PERTUZUMAB [Suspect]
     Active Substance: PERTUZUMAB
     Indication: Breast cancer metastatic
     Dosage: 840 MG EVERY 3 WEEKS, LOADING DOSE
     Route: 042
     Dates: start: 20150930, end: 20150930
  4. PERTUZUMAB [Suspect]
     Active Substance: PERTUZUMAB
     Dosage: 420 MG EVERY 3 WEEKS, MAINTAINANCE DOSE
     Route: 042
     Dates: start: 20151021
  5. PACLITAXEL [Suspect]
     Active Substance: PACLITAXEL
     Indication: Breast cancer metastatic
     Dosage: 150 MG, EVERY 1 WEEK
     Route: 042
     Dates: start: 20151111, end: 20151222
  6. PACLITAXEL [Suspect]
     Active Substance: PACLITAXEL
     Dosage: 120 MG, EVERY 1 WEEK
     Route: 042
     Dates: start: 20151223, end: 20151223
  7. DOCETAXEL [Suspect]
     Active Substance: DOCETAXEL
     Indication: Breast cancer metastatic
     Dosage: 110 MG EVERY 3 WEEKS, NUMBER OF CYCLE PER REGIMEN 2
     Route: 042
     Dates: start: 20150930, end: 20151021
  8. ORAMORPH SR SUSTAINED RELEASE [Concomitant]
     Active Substance: MORPHINE SULFATE
     Dosage: 10 MG
     Route: 048
     Dates: start: 201509
  9. DENOSUMAB [Concomitant]
     Active Substance: DENOSUMAB
     Indication: Metastases to bone
     Dosage: 120 MG EVERY 9 WEEKS
     Route: 058
     Dates: start: 20150930
  10. MORPHINE [Concomitant]
     Active Substance: MORPHINE
     Dosage: 30 MILLIGRAM, EVERY 0.5 DAY; MORPHINE MR
     Route: 048
     Dates: start: 201509
  11. ACETAMINOPHEN [Concomitant]
     Active Substance: ACETAMINOPHEN
     Indication: Pain
     Dosage: 500 MG
     Route: 048
     Dates: start: 20160127
  12. GENTAMICIN [Concomitant]
     Active Substance: GENTAMICIN
     Indication: Febrile neutropenia
     Dosage: UNK
     Route: 042
     Dates: start: 20151121, end: 201511
  13. CALCIUM\CHOLECALCIFEROL [Concomitant]
     Active Substance: CALCIUM\CHOLECALCIFEROL
     Dosage: 2 DF, EVERY 1 DAY
     Route: 048
     Dates: start: 2011
  14. RANITIDINE [Concomitant]
     Active Substance: RANITIDINE
     Indication: Gastrooesophageal reflux disease
     Dosage: 50 MG, 1/WEEK
     Route: 058
     Dates: start: 20151111
  15. MIRTAZAPINE [Concomitant]
     Active Substance: MIRTAZAPINE
     Dosage: 15 MG, EVERY 1 DAY
     Route: 048
     Dates: start: 201510
  16. PIPERACILLIN SODIUM\TAZOBACTAM SODIUM [Concomitant]
     Active Substance: PIPERACILLIN SODIUM\TAZOBACTAM SODIUM
     Indication: Febrile neutropenia
     Dosage: UNK
     Route: 042
     Dates: start: 20151121, end: 201511
  17. CHLORPHENIRAMINE MALEATE [Concomitant]
     Active Substance: CHLORPHENIRAMINE MALEATE
     Dosage: 10 MG, EVERY WEEK; ANTIHISTAMINE DELIVERED WITH PACLITAXEL
     Route: 058
     Dates: start: 20151111, end: 20160127
  18. OMEPRAZOLE [Concomitant]
     Active Substance: OMEPRAZOLE
     Indication: Dyspepsia
     Dosage: 20 MG, EVERY 1 DAY
     Route: 048
     Dates: start: 201509
  19. OMEPRAZOLE [Concomitant]
     Active Substance: OMEPRAZOLE
     Dosage: 20 MG, EVERY 1 DAY
     Route: 048
     Dates: start: 20151110
  20. OMEPRAZOLE [Concomitant]
     Active Substance: OMEPRAZOLE
     Dosage: 20 MG, EVERY 1 DAY
     Route: 048
     Dates: start: 20151210
  21. PREGABALIN [Concomitant]
     Active Substance: PREGABALIN
     Dosage: 75 MILLIGRAM, EVERY 0.5 DAY
     Route: 048
     Dates: start: 201509
  22. AMOXICILLIN\CLAVULANATE POTASSIUM [Concomitant]
     Active Substance: AMOXICILLIN\CLAVULANATE POTASSIUM
     Indication: Febrile neutropenia
     Dosage: 625 MILLIGRAM, EVERY 0.33 DAY
     Route: 048
     Dates: start: 20151122, end: 20151125
  23. LEVOFLOXACIN [Concomitant]
     Active Substance: LEVOFLOXACIN
     Indication: Febrile neutropenia
     Dosage: 500 MG, EVERY 1 DAY
     Route: 048
     Dates: start: 20151125, end: 20151128

REACTIONS (3)
  - Disease progression [Fatal]
  - Cellulitis [Recovered/Resolved]
  - Fatigue [Recovered/Resolved]

NARRATIVE: CASE EVENT DATE: 20151201
